FAERS Safety Report 19156359 (Version 1)
Quarter: 2021Q2

REPORT INFORMATION
  Report Type: Other
  Country: PL (occurrence: PL)
  Receive Date: 20210420
  Receipt Date: 20210420
  Transmission Date: 20210717
  Serious: Yes (Hospitalization)
  Sender: FDA-Public Use
  Company Number: PL-ROCHE-2813710

PATIENT
  Age: 39 Year
  Sex: Female

DRUGS (1)
  1. ACTILYSE [Suspect]
     Active Substance: ALTEPLASE
     Indication: ISCHAEMIC STROKE
     Dosage: THE PATIENT WAS QUALIFIED TO THROMBOLYTIC THERAPY; 60 MG OF ALTEPLASE I.V. WAS GIVEN
     Route: 042

REACTIONS (6)
  - Posthaemorrhagic hydrocephalus [Unknown]
  - Acute respiratory failure [Unknown]
  - Subarachnoid haemorrhage [Unknown]
  - Off label use [Unknown]
  - Cerebral haematoma [Unknown]
  - Neurological decompensation [Unknown]

NARRATIVE: CASE EVENT DATE: 202009
